FAERS Safety Report 19836140 (Version 1)
Quarter: 2021Q3

REPORT INFORMATION
  Report Type: Spontaneous
  Country: US (occurrence: US)
  Receive Date: 20210915
  Receipt Date: 20210915
  Transmission Date: 20211014
  Serious: No
  Sender: FDA-Public Use
  Company Number: US-BIOHAVEN PHARMACEUTICALS-2021BHV01017

PATIENT
  Age: 21 Year
  Sex: Female
  Weight: 94.8 kg

DRUGS (7)
  1. NURTEC ODT [Suspect]
     Active Substance: RIMEGEPANT SULFATE
     Dosage: 75 MG, EVERY 48 HOURS
     Route: 060
     Dates: start: 2021
  2. AMITRIPTYLINE [Concomitant]
     Active Substance: AMITRIPTYLINE
     Dosage: 30 MG, 1X/DAY
  3. PROPRANOLOL [Concomitant]
     Active Substance: PROPRANOLOL HYDROCHLORIDE
     Dosage: 20 MG, 1X/DAY
  4. INCASSIA [Concomitant]
     Active Substance: NORETHINDRONE
     Dosage: 0.35 MG, 1X/DAY
  5. MAGNESIUM [Concomitant]
     Active Substance: MAGNESIUM
     Dosage: 250 MG, 1X/DAY
  6. PHENTERMINE. [Concomitant]
     Active Substance: PHENTERMINE
     Dosage: 18.75 MG, 2X/DAY (MORNING AND NIGHT)
  7. NURTEC ODT [Suspect]
     Active Substance: RIMEGEPANT SULFATE
     Indication: MIGRAINE
     Dosage: 75 MG, EVERY 48 HOURS
     Route: 060
     Dates: start: 202107, end: 2021

REACTIONS (5)
  - Premenstrual syndrome [Unknown]
  - Dizziness [Unknown]
  - Tension headache [Not Recovered/Not Resolved]
  - Migraine [Unknown]
  - Therapeutic product effect incomplete [Unknown]

NARRATIVE: CASE EVENT DATE: 2021
